FAERS Safety Report 17820051 (Version 1)
Quarter: 2020Q2

REPORT INFORMATION
  Report Type: Spontaneous
  Country: CN (occurrence: CN)
  Receive Date: 20200525
  Receipt Date: 20200525
  Transmission Date: 20200714
  Serious: Yes (Other)
  Sender: FDA-Public Use
  Company Number: CN-ROCHE-2604825

PATIENT
  Age: 32 Year
  Sex: Male

DRUGS (10)
  1. AVASTIN [Suspect]
     Active Substance: BEVACIZUMAB
     Indication: ADENOCARCINOMA
     Route: 065
     Dates: start: 20190913, end: 20200123
  2. OXALIPLATIN. [Concomitant]
     Active Substance: OXALIPLATIN
     Indication: ADENOCARCINOMA
     Dosage: 4 CYCLES XELOX REGIMEN
     Route: 065
     Dates: start: 20190408, end: 20190620
  3. CALCIUM FOLINATE [Concomitant]
     Active Substance: LEUCOVORIN CALCIUM
     Indication: ADENOCARCINOMA
     Dosage: 8 CYCLES FOLFIRI REGIMEN
     Route: 065
     Dates: start: 20190913, end: 20200123
  4. XELODA [Suspect]
     Active Substance: CAPECITABINE
     Route: 065
     Dates: start: 20200409
  5. XELODA [Suspect]
     Active Substance: CAPECITABINE
     Indication: ADENOCARCINOMA
     Dosage: 4 CYCLES XELOX REGIMEN
     Route: 065
     Dates: start: 20190408, end: 20190620
  6. AVASTIN [Suspect]
     Active Substance: BEVACIZUMAB
     Route: 065
     Dates: start: 20200409
  7. XELODA [Suspect]
     Active Substance: CAPECITABINE
     Dosage: XELOX REGIMEN
     Route: 065
     Dates: start: 20190624
  8. OXALIPLATIN. [Concomitant]
     Active Substance: OXALIPLATIN
     Dosage: XELOX REGIMEN
     Route: 065
     Dates: start: 20190624
  9. FLUOROURACIL. [Concomitant]
     Active Substance: FLUOROURACIL
     Indication: ADENOCARCINOMA
     Dosage: 8 CYCLES FOLFIRI REGIMEN
     Route: 065
     Dates: start: 20190913, end: 20200123
  10. IRINOTECAN [Concomitant]
     Active Substance: IRINOTECAN
     Indication: ADENOCARCINOMA
     Dosage: 8 CYCLES FOLFIRI REGIMEN
     Route: 065
     Dates: start: 20190913, end: 20200123

REACTIONS (3)
  - Intentional product use issue [Unknown]
  - Off label use [Unknown]
  - Bone marrow failure [Unknown]
